FAERS Safety Report 6608809-0 (Version None)
Quarter: 2010Q1

REPORT INFORMATION
  Report Type: 
  Country: None (occurrence: None)
  Receive Date: 20100226
  Receipt Date: 20100226
  Transmission Date: 20100710
  Serious: Yes (Other)
  Sender: FDA-Public Use
  Company Number: None

PATIENT
  Age: 30 Year
  Sex: Female
  Weight: 56.6996 kg

DRUGS (2)
  1. CREST WHITENING PLUS SCOPE SODIUM FLUORIDE 0.243% PROCTOR AND GAMBLE [Suspect]
     Indication: DENTAL CARIES
     Dosage: ONE HALF INCH 2X DAILY PO
     Route: 048
     Dates: start: 20100220, end: 20100223
  2. CREST WHITENING PLUS SCOPE SODIUM FLUORIDE 0.243% PROCTOR AND GAMBLE [Suspect]
     Indication: PROPHYLAXIS
     Dosage: ONE HALF INCH 2X DAILY PO
     Route: 048
     Dates: start: 20100220, end: 20100223

REACTIONS (1)
  - SOFT TISSUE DISORDER [None]
